FAERS Safety Report 4823241-8 (Version None)
Quarter: 2005Q4

REPORT INFORMATION
  Report Type: 
  Country: None (occurrence: None)
  Receive Date: 20051108
  Receipt Date: 20051108
  Transmission Date: 20060501
  Serious: Yes (Other)
  Sender: FDA-Public Use
  Company Number: None

PATIENT
  Age: 35 Year
  Sex: Female
  Weight: 58.9676 kg

DRUGS (2)
  1. ZOLOFT [Suspect]
     Indication: DEPRESSION
     Dosage: 1 PER DAY PO
     Route: 048
     Dates: start: 20050106, end: 20050106
  2. LEXAPRO [Suspect]
     Indication: DEPRESSION
     Dosage: 1 PER DAY PO
     Route: 048
     Dates: start: 20050107, end: 20050311

REACTIONS (11)
  - ABNORMAL BEHAVIOUR [None]
  - CRYING [None]
  - DRUG HYPERSENSITIVITY [None]
  - DRUG WITHDRAWAL SYNDROME [None]
  - DYSKINESIA [None]
  - FEELING DRUNK [None]
  - HEART RATE INCREASED [None]
  - MUSCLE SPASMS [None]
  - PSYCHIATRIC SYMPTOM [None]
  - SOMNOLENCE [None]
  - TREMOR [None]
